FAERS Safety Report 10188249 (Version 2)
Quarter: 2014Q2

REPORT INFORMATION
  Report Type: Report from Study
  Country: TH (occurrence: TH)
  Receive Date: 20140522
  Receipt Date: 20140522
  Transmission Date: 20141212
  Serious: Yes (Hospitalization, Other)
  Sender: FDA-Public Use
  Company Number: TH-ASTELLAS-2014US004076

PATIENT
  Sex: Male
  Weight: 60 kg

DRUGS (26)
  1. TACROLIMUS [Suspect]
     Indication: RENAL TRANSPLANT
     Route: 065
     Dates: start: 20030818
  2. TACROLIMUS [Suspect]
     Route: 065
     Dates: start: 20030911
  3. TACROLIMUS [Suspect]
     Route: 065
     Dates: start: 20031120
  4. TACROLIMUS [Suspect]
     Route: 065
     Dates: start: 20040809
  5. CELLCEPT                           /01275102/ [Concomitant]
     Indication: IMMUNOSUPPRESSANT DRUG THERAPY
     Route: 065
  6. PREDNISOLONE [Concomitant]
     Indication: IMMUNOSUPPRESSANT DRUG THERAPY
     Route: 065
  7. MADIPLOT [Concomitant]
     Indication: HYPERTENSION
     Route: 065
  8. ATENOLOL [Concomitant]
     Indication: HYPERTENSION
     Route: 065
  9. SIMVASTATIN [Concomitant]
     Indication: LIPIDS
     Route: 065
  10. METHYLPREDNISOLONE [Concomitant]
     Indication: PROPHYLAXIS AGAINST TRANSPLANT REJECTION
     Route: 065
  11. ACYCLOVIR                          /00587301/ [Concomitant]
     Indication: PRODUCT USED FOR UNKNOWN INDICATION
     Route: 065
  12. INH [Concomitant]
     Indication: PRODUCT USED FOR UNKNOWN INDICATION
     Route: 065
  13. CO-TRIMOXAZOLE [Concomitant]
     Indication: PRODUCT USED FOR UNKNOWN INDICATION
     Dosage: UNK UNK, UNKNOWN FREQ.
     Route: 065
  14. CEPHALEXIN                         /00145501/ [Concomitant]
     Indication: PRODUCT USED FOR UNKNOWN INDICATION
     Route: 065
  15. NEXIUM                             /01479302/ [Concomitant]
     Indication: PRODUCT USED FOR UNKNOWN INDICATION
     Route: 065
  16. ASA [Concomitant]
     Indication: PRODUCT USED FOR UNKNOWN INDICATION
     Dosage: UNK UNK, UNKNOWN FREQ.
     Route: 065
  17. CARVEDILOL [Concomitant]
     Indication: PRODUCT USED FOR UNKNOWN INDICATION
     Route: 065
  18. NACL [Concomitant]
     Indication: PRODUCT USED FOR UNKNOWN INDICATION
     Dosage: UNK UNK, UNKNOWN FREQ.
     Route: 065
  19. COMBIZYM                           /00014701/ [Concomitant]
     Indication: PRODUCT USED FOR UNKNOWN INDICATION
     Dosage: UNK UNK, UNKNOWN FREQ.
     Route: 065
  20. ALUM MILK                          /00082501/ [Concomitant]
     Indication: PRODUCT USED FOR UNKNOWN INDICATION
     Dosage: UNK UNK, UNKNOWN FREQ.
     Route: 065
  21. ASPENT-M [Concomitant]
     Indication: PRODUCT USED FOR UNKNOWN INDICATION
     Route: 065
  22. ALUMINIUM CHLORIDE [Concomitant]
     Indication: PRODUCT USED FOR UNKNOWN INDICATION
     Route: 065
  23. RANITIDINE [Concomitant]
     Indication: PRODUCT USED FOR UNKNOWN INDICATION
     Route: 065
  24. HUMULIN N [Concomitant]
     Indication: DIABETES MELLITUS
     Dosage: UNK UNK, UNKNOWN FREQ.
     Route: 065
  25. HUMULIN R [Concomitant]
     Indication: DIABETES MELLITUS
     Dosage: UNK UNK, UNKNOWN FREQ.
     Route: 065
  26. LIPITOR [Concomitant]
     Indication: LIPIDS INCREASED
     Route: 065

REACTIONS (5)
  - Diabetic ketoacidosis [Recovered/Resolved]
  - Blood creatinine increased [Recovered/Resolved]
  - Transplant rejection [Recovered/Resolved]
  - Diabetes mellitus [Not Recovered/Not Resolved]
  - Renal failure acute [Recovered/Resolved]
